FAERS Safety Report 11788240 (Version 1)
Quarter: 2015Q4

REPORT INFORMATION
  Report Type: Spontaneous
  Country: US (occurrence: US)
  Receive Date: 20151201
  Receipt Date: 20151201
  Transmission Date: 20160305
  Serious: No
  Sender: FDA-Public Use
  Company Number: US-B.I. PHARMACEUTICALS,INC./RIDGEFIELD-2015-BI-64844BP

PATIENT
  Sex: Male

DRUGS (4)
  1. SEROQUEL [Concomitant]
     Active Substance: QUETIAPINE FUMARATE
     Indication: BIPOLAR DISORDER
     Dosage: 400 MG
     Route: 048
     Dates: start: 1995
  2. REMERON [Concomitant]
     Active Substance: MIRTAZAPINE
     Indication: BIPOLAR DISORDER
     Dosage: 30 MG
     Route: 048
  3. MIRAPEX [Suspect]
     Active Substance: PRAMIPEXOLE DIHYDROCHLORIDE
     Indication: RESTLESS LEGS SYNDROME
     Dosage: 2 MG
     Route: 048
     Dates: start: 2012, end: 201503
  4. MIRAPEX [Suspect]
     Active Substance: PRAMIPEXOLE DIHYDROCHLORIDE
     Dosage: 3 MG
     Route: 048
     Dates: start: 201503

REACTIONS (4)
  - Gambling [Not Recovered/Not Resolved]
  - Incorrect dosage administered [Not Recovered/Not Resolved]
  - Drug ineffective [Not Recovered/Not Resolved]
  - Compulsive shopping [Not Recovered/Not Resolved]

NARRATIVE: CASE EVENT DATE: 2012
